FAERS Safety Report 7046889-1 (Version None)
Quarter: 2010Q4

REPORT INFORMATION
  Report Type: 
  Country: None (occurrence: None)
  Receive Date: 20101015
  Receipt Date: 20101005
  Transmission Date: 20110411
  Serious: Yes (Other)
  Sender: FDA-Public Use
  Company Number: PHHY2010CA66916

PATIENT
  Sex: Female

DRUGS (5)
  1. ACLASTA [Suspect]
     Indication: OSTEOPOROSIS
     Dosage: 5 MG/100ML
     Route: 042
     Dates: start: 20100527
  2. ZOPIDEM [Concomitant]
     Dosage: 7.5 MG
  3. NEXIUM [Concomitant]
     Dosage: 40 MG ONCE DAILY
  4. HYDROMORPH [Concomitant]
     Dosage: 128 MG, QID
  5. DURAGESIC-100 [Concomitant]
     Dosage: 75 MG PATCH

REACTIONS (2)
  - DISORIENTATION [None]
  - HEADACHE [None]
